FAERS Safety Report 7400659-0 (Version None)
Quarter: 2011Q2

REPORT INFORMATION
  Report Type: 
  Country: None (occurrence: None)
  Receive Date: 20110407
  Receipt Date: 20110329
  Transmission Date: 20111010
  Serious: Yes (Hospitalization)
  Sender: FDA-Public Use
  Company Number: A0749671A

PATIENT
  Age: 75 Year
  Sex: Male
  Weight: 100 kg

DRUGS (5)
  1. ATENOLOL [Concomitant]
  2. AVAPRO [Concomitant]
  3. AVANDIA [Suspect]
     Dosage: 4MG PER DAY
     Route: 048
     Dates: start: 20050804, end: 20061101
  4. ZOCOR [Concomitant]
  5. GLUCOPHAGE [Concomitant]

REACTIONS (3)
  - HEART INJURY [None]
  - ACUTE CORONARY SYNDROME [None]
  - MYOCARDIAL INFARCTION [None]
